FAERS Safety Report 7374524-1 (Version None)
Quarter: 2011Q1

REPORT INFORMATION
  Report Type: 
  Country: None (occurrence: None)
  Receive Date: 20110325
  Receipt Date: 20100205
  Transmission Date: 20110831
  Serious: No
  Sender: FDA-Public Use
  Company Number: US-MYLANLABS-2010S1002226

PATIENT
  Age: 32 Year
  Sex: Female
  Weight: 68.04 kg

DRUGS (5)
  1. FENTANYL-100 [Suspect]
     Indication: ARTHRALGIA
     Dosage: Q48HR
     Route: 062
     Dates: start: 20030101
  2. VISTARIL [Concomitant]
  3. IMMUNE GLOBULIN INTRAVENOUS (HUMAN) [Concomitant]
  4. VITAMIN TAB [Concomitant]
  5. FENTANYL-100 [Suspect]
     Dosage: Q48HR
     Route: 062
     Dates: start: 20030101

REACTIONS (4)
  - DRUG INEFFECTIVE [None]
  - PAIN [None]
  - MUSCLE SPASMS [None]
  - WITHDRAWAL SYNDROME [None]
